FAERS Safety Report 8521886-5 (Version None)
Quarter: 2012Q3

REPORT INFORMATION
  Report Type: 
  Country: None (occurrence: None)
  Receive Date: 20120719
  Receipt Date: 20120711
  Transmission Date: 20120928
  Serious: Yes (Other)
  Sender: FDA-Public Use
  Company Number: DE-JNJFOC-20120702623

PATIENT
  Sex: Female
  Weight: 61 kg

DRUGS (5)
  1. DIGITOXIN TAB [Concomitant]
     Dates: start: 20120619, end: 20120628
  2. TORSEMIDE [Concomitant]
     Dates: start: 20120619, end: 20120628
  3. SPIRONOLACTONE [Concomitant]
     Dates: start: 20120619, end: 20120628
  4. XARELTO [Suspect]
     Indication: CEREBROVASCULAR ACCIDENT PROPHYLAXIS
     Route: 048
     Dates: start: 20120619
  5. XARELTO [Suspect]
     Indication: ATRIAL FIBRILLATION
     Route: 048
     Dates: start: 20120619

REACTIONS (1)
  - TRANSIENT ISCHAEMIC ATTACK [None]
